FAERS Safety Report 4383012-6 (Version None)
Quarter: 2004Q2

REPORT INFORMATION
  Report Type: 
  Country: None (occurrence: None)
  Receive Date: 20040526
  Receipt Date: 20040305
  Transmission Date: 20050107
  Serious: Yes (Other)
  Sender: FDA-Public Use
  Company Number: USA020718316

PATIENT
  Age: 12 Year
  Sex: Male
  Weight: 59 kg

DRUGS (6)
  1. ZYPREXA [Suspect]
     Indication: BIPOLAR DISORDER
     Dosage: 15 MG/DAY
     Dates: start: 20010518, end: 20020701
  2. ZYPREXA [Suspect]
     Indication: HALLUCINATION
     Dosage: 15 MG/DAY
     Dates: start: 20010518, end: 20020701
  3. DEPAKOTE [Concomitant]
  4. DILANTIN [Concomitant]
  5. BENADRYL [Concomitant]
  6. TENEX [Concomitant]

REACTIONS (18)
  - ABNORMAL BEHAVIOUR [None]
  - ATAXIA [None]
  - COGNITIVE DISORDER [None]
  - DEPRESSION [None]
  - DIFFICULTY IN WALKING [None]
  - FALL [None]
  - GINGIVAL HYPERTROPHY [None]
  - GRAND MAL CONVULSION [None]
  - HALLUCINATION, AUDITORY [None]
  - HERPES SIMPLEX [None]
  - LETHARGY [None]
  - MOTOR DYSFUNCTION [None]
  - PSYCHOTIC DISORDER [None]
  - SOCIAL AVOIDANT BEHAVIOUR [None]
  - SPEECH DISORDER [None]
  - TREMOR [None]
  - WEIGHT DECREASED [None]
  - WEIGHT INCREASED [None]
